FAERS Safety Report 18742029 (Version 2)
Quarter: 2021Q1

REPORT INFORMATION
  Report Type: Spontaneous
  Country: US (occurrence: US)
  Receive Date: 20210114
  Receipt Date: 20210122
  Transmission Date: 20210419
  Serious: Yes (Death, Hospitalization, Other)
  Sender: FDA-Public Use
  Company Number: US-PFIZER INC-2021018494

PATIENT
  Age: 53 Year
  Sex: Male

DRUGS (5)
  1. FRUSEMIDE [FUROSEMIDE] [Concomitant]
     Active Substance: FUROSEMIDE
     Dosage: UNK
  2. DROPERIDOL. [Suspect]
     Active Substance: DROPERIDOL
     Dosage: 0.625 MG (5 DOSES)
     Route: 042
  3. COUMADIN [Concomitant]
     Active Substance: WARFARIN SODIUM
     Dosage: UNK
  4. DIGOXIN. [Concomitant]
     Active Substance: DIGOXIN
     Dosage: UNK
  5. AMIODARONE [Concomitant]
     Active Substance: AMIODARONE
     Dosage: UNK

REACTIONS (1)
  - Cardiac arrest [Fatal]
